FAERS Safety Report 16350483 (Version 1)
Quarter: 2019Q2

REPORT INFORMATION
  Report Type: Other
  Country: GB (occurrence: GB)
  Receive Date: 20190524
  Receipt Date: 20190524
  Transmission Date: 20190711
  Serious: Yes (Hospitalization, Other)
  Sender: FDA-Public Use
  Company Number: GB-MACLEODS PHARMACEUTICALS US LTD-MAC2019021372

PATIENT

DRUGS (6)
  1. CELECOXIB. [Suspect]
     Active Substance: CELECOXIB
     Indication: PRODUCT USED FOR UNKNOWN INDICATION
     Dosage: 400 MILLIGRAM, QD
     Route: 065
     Dates: start: 20181221
  2. BUPRENORPHINE. [Concomitant]
     Active Substance: BUPRENORPHINE
     Indication: PRODUCT USED FOR UNKNOWN INDICATION
     Dosage: 1 DOSAGE FORM, QD
     Route: 065
     Dates: start: 20190212
  3. OMEPRAZOLE. [Concomitant]
     Active Substance: OMEPRAZOLE
     Indication: PRODUCT USED FOR UNKNOWN INDICATION
     Dosage: 2 DOSAGE FORM, QD
     Route: 065
     Dates: start: 20181221, end: 20190212
  4. COCODAMOL [Concomitant]
     Active Substance: ACETAMINOPHEN\CODEINE PHOSPHATE
     Indication: PRODUCT USED FOR UNKNOWN INDICATION
     Dosage: UNK, ONE OR TWO TO BE TAKEN FOUR TIMES DAILY
     Route: 065
     Dates: start: 20180807
  5. TRAZODONE [Concomitant]
     Active Substance: TRAZODONE HYDROCHLORIDE
     Indication: PRODUCT USED FOR UNKNOWN INDICATION
     Dosage: 4 DOSAGE FORM, QD NIGHT
     Route: 065
     Dates: start: 20181221
  6. NEFOPAM [Concomitant]
     Active Substance: NEFOPAM
     Indication: PRODUCT USED FOR UNKNOWN INDICATION
     Dosage: UNK, TAKE ONE-TWO3 TIMES/DAY
     Route: 065
     Dates: start: 20180807

REACTIONS (1)
  - Primary headache associated with sexual activity [Recovered/Resolved]
